FAERS Safety Report 8221855 (Version 2)
Quarter: 2012Q4

REPORT INFORMATION
  Report Type: 
  Country: US (occurrence: US)
  Receive Date: 20111102
  Receipt Date: 20121115
  Transmission Date: 20130627
  Serious: Yes (Other)
  Sender: FDA-Public Use
  Company Number: US-ASTRAZENECA-2011SE64727

PATIENT
  Age: 72 Year
  Sex: Male

DRUGS (2)
  1. NEXIUM [Suspect]
     Route: 048
  2. TOPROL XL [Suspect]
     Route: 048

REACTIONS (4)
  - Neoplasm malignant [Unknown]
  - Gallbladder perforation [Unknown]
  - Nodule [Unknown]
  - Hypertension [Unknown]
